FAERS Safety Report 4568410-X (Version None)
Quarter: 2005Q1

REPORT INFORMATION
  Report Type: 
  Country: None (occurrence: None)
  Receive Date: 20050113
  Receipt Date: 20050120
  Transmission Date: 20050727
  Serious: Yes (Hospitalization)
  Sender: FDA-Public Use
  Company Number: HQWYE773621JAN05

PATIENT
  Age: 87 Year
  Sex: Female

DRUGS (1)
  1. INIPOMP (PANTOPRAZOLE, TABLET, DELAYED RELEASE) [Suspect]
     Route: 048

REACTIONS (1)
  - RENAL FAILURE ACUTE [None]
